FAERS Safety Report 8161848-3 (Version None)
Quarter: 2012Q1

REPORT INFORMATION
  Report Type: 
  Country: None (occurrence: None)
  Receive Date: 20120224
  Receipt Date: 20110726
  Transmission Date: 20120608
  Serious: No
  Sender: FDA-Public Use
  Company Number: US-BRISTOL-MYERS SQUIBB COMPANY-15907884

PATIENT
  Sex: Female

DRUGS (2)
  1. LEVEMIR [Suspect]
     Dosage: FIRST INTERRUPTED AND THEN WITHDRAWN LEVEMIR FLEXPEN
     Dates: end: 20110629
  2. METFORMIN HCL [Suspect]

REACTIONS (3)
  - DECREASED APPETITE [None]
  - GENERAL SYMPTOM [None]
  - INSOMNIA [None]
